FAERS Safety Report 8816450 (Version 1)
Quarter: 2012Q4

REPORT INFORMATION
  Report Type: Spontaneous
  Country: ES (occurrence: None)
  Receive Date: 20120927
  Receipt Date: 20120927
  Transmission Date: 20130627
  Serious: Yes (Hospitalization, Other)
  Sender: FDA-Public Use
  Company Number: EU-2012-10239

PATIENT
  Age: 65 Year
  Sex: Male

DRUGS (5)
  1. CILOSTAZOL [Suspect]
     Indication: INTERMITTENT CLAUDICATION
     Route: 048
  2. LOSARTAN [Concomitant]
  3. HYDROCHLOROTHIAZIDE (HYDROCHLOROTHIAZIDE) [Concomitant]
  4. 3) ACETYLSALICYLIC ACID (ACETYLSALICYLIC ACID) [Concomitant]
  5. 1) ALOPURINOL (ALLOPURINOL) [Concomitant]

REACTIONS (2)
  - Clostridium difficile colitis [None]
  - Prerenal failure [None]
